FAERS Safety Report 6138985-8 (Version None)
Quarter: 2009Q1

REPORT INFORMATION
  Report Type: 
  Country: None (occurrence: None)
  Receive Date: 20090331
  Receipt Date: 20090323
  Transmission Date: 20090719
  Serious: Yes (Other)
  Sender: FDA-Public Use
  Company Number: US-GENENTECH-280065

PATIENT
  Age: 54 Year
  Sex: Male
  Weight: 123 kg

DRUGS (2)
  1. XOLAIR [Suspect]
     Indication: ASTHMA
     Dosage: 300 UNK, Q4W
     Route: 058
     Dates: start: 20050516, end: 20090209
  2. XOLAIR [Suspect]
     Indication: RHINITIS ALLERGIC

REACTIONS (1)
  - NEUROPATHY PERIPHERAL [None]
